FAERS Safety Report 19416944 (Version 1)
Quarter: 2021Q2

REPORT INFORMATION
  Report Type: Spontaneous
  Country: US (occurrence: US)
  Receive Date: 20210614
  Receipt Date: 20210614
  Transmission Date: 20210717
  Serious: Yes (Hospitalization)
  Sender: FDA-Public Use
  Company Number: None

PATIENT
  Age: 47 Year
  Sex: Male

DRUGS (6)
  1. CUCLOBENZAPR [Concomitant]
  2. OXYCODONE [Concomitant]
     Active Substance: OXYCODONE
  3. PREDNISONE 5 MG [Suspect]
     Active Substance: PREDNISONE
     Indication: RENAL TRANSPLANT
     Route: 048
  4. TACROLIMUS  1 MG [Suspect]
     Active Substance: TACROLIMUS
     Indication: RENAL TRANSPLANT
     Route: 048
     Dates: start: 20200609
  5. MYCOPHENOLAT [Concomitant]
     Active Substance: MYCOPHENOLATE MOFETIL
  6. ACETAMIN [Concomitant]
     Active Substance: ACETAMINOPHEN

REACTIONS (1)
  - Headache [None]

NARRATIVE: CASE EVENT DATE: 20210609
